FAERS Safety Report 7586663-0 (Version None)
Quarter: 2011Q3

REPORT INFORMATION
  Report Type: 
  Country: None (occurrence: None)
  Receive Date: 20110701
  Receipt Date: 20110620
  Transmission Date: 20111222
  Serious: Yes (Other)
  Sender: FDA-Public Use
  Company Number: US-ELI_LILLY_AND_COMPANY-US201106006799

PATIENT
  Sex: Female

DRUGS (2)
  1. HUMALOG [Suspect]
     Indication: DIABETES MELLITUS
     Dosage: 8 U, QD
  2. HUMALOG [Suspect]
     Dosage: 8 U, QD

REACTIONS (2)
  - DIALYSIS [None]
  - INCORRECT DOSE ADMINISTERED [None]
